FAERS Safety Report 11769440 (Version 1)
Quarter: 2015Q4

REPORT INFORMATION
  Report Type: Spontaneous
  Country: US (occurrence: US)
  Receive Date: 20151123
  Receipt Date: 20151123
  Transmission Date: 20160304
  Serious: Yes (Death)
  Sender: FDA-Public Use
  Company Number: PHHY2015US148626

PATIENT
  Age: 20 Year
  Sex: Male

DRUGS (1)
  1. ZIPRASIDONE. [Suspect]
     Active Substance: ZIPRASIDONE
     Indication: AUTISM
     Route: 065

REACTIONS (3)
  - Hyperosmolar hyperglycaemic state [Fatal]
  - Cardiac arrest [Fatal]
  - Neuroleptic malignant syndrome [Fatal]
